FAERS Safety Report 8858448 (Version 3)
Quarter: 2013Q3

REPORT INFORMATION
  Report Type: Spontaneous
  Country: AR (occurrence: AR)
  Receive Date: 20121025
  Receipt Date: 20130730
  Transmission Date: 20140515
  Serious: Yes (Other)
  Sender: FDA-Public Use
  Company Number: AR-BRISTOL-MYERS SQUIBB COMPANY-17061169

PATIENT
  Age: 34 Year
  Sex: Female

DRUGS (4)
  1. REYATAZ [Suspect]
     Indication: HIV INFECTION
     Dosage: RE MEDICATION AT WEEK 14 OF PREGNANCY
     Route: 048
  2. EFAVIRENZ [Suspect]
     Indication: HIV INFECTION
     Dosage: ONGOING.
     Route: 048
     Dates: start: 20110501
  3. ZIDOVUDINE [Suspect]
     Indication: HIV INFECTION
     Dosage: RE MEDICATION AT WEEK 14 OF PREGNANCY
     Route: 048
     Dates: start: 20110201
  4. LAMIVUDINE [Suspect]
     Indication: HIV INFECTION
     Dosage: RE MEDICATION AT WEEK 14 OF PREGNANCY
     Route: 065
     Dates: start: 20110201

REACTIONS (4)
  - Abortion induced [Unknown]
  - Foetal heart rate abnormal [Unknown]
  - Pregnancy [Recovered/Resolved]
  - Herpes zoster [Recovered/Resolved]
